FAERS Safety Report 6445474-X (Version None)
Quarter: 2009Q4

REPORT INFORMATION
  Report Type: 
  Country: None (occurrence: None)
  Receive Date: 20091118
  Receipt Date: 20091110
  Transmission Date: 20100525
  Serious: Yes (Death)
  Sender: FDA-Public Use
  Company Number: FR-GENENTECH-293979

PATIENT
  Weight: 62 kg

DRUGS (9)
  1. AVASTIN [Suspect]
     Indication: COLORECTAL CANCER METASTATIC
     Dosage: 300 MG, UNK
     Dates: start: 20080826
  2. IRINOTECAN HCL [Suspect]
     Indication: COLORECTAL CANCER METASTATIC
     Dosage: 460 MG, UNK
     Dates: start: 20080826
  3. FLUOROURACIL [Suspect]
     Indication: COLORECTAL CANCER METASTATIC
     Dosage: 700 MG, UNK
     Route: 040
     Dates: start: 20080826
  4. FLUOROURACIL [Suspect]
     Dosage: 4220 MG, UNK
     Route: 042
     Dates: start: 20080826
  5. CALCIUM LEVOFOLINATE [Suspect]
     Indication: COLORECTAL CANCER METASTATIC
     Dosage: 350 MG, UNK
     Dates: start: 20080826
  6. ZOPHREN [Concomitant]
     Indication: NAUSEA
     Dosage: 8 MG, UNK
     Route: 048
     Dates: start: 20080827, end: 20080828
  7. FORLAX (BELGIUM) [Concomitant]
     Indication: CONSTIPATION
     Dosage: 10 G, UNK
     Route: 048
     Dates: start: 20080827
  8. SOLU-MEDROL [Concomitant]
     Indication: DRUG USE FOR UNKNOWN INDICATION
     Dosage: 60 MG, UNK
     Route: 040
     Dates: start: 20080826
  9. IXPRIM [Concomitant]
     Indication: PAIN
     Dosage: UNK
     Route: 048
     Dates: start: 20080827

REACTIONS (2)
  - NEUTROPENIA [None]
  - PYREXIA [None]
